FAERS Safety Report 6122540-X (Version None)
Quarter: 2009Q1

REPORT INFORMATION
  Report Type: 
  Country: None (occurrence: None)
  Receive Date: 20090318
  Receipt Date: 20090112
  Transmission Date: 20090719
  Serious: No
  Sender: FDA-Public Use
  Company Number: US-ASTRAZENECA-2009UW01010

PATIENT
  Age: 19 Year
  Sex: Female

DRUGS (7)
  1. SYMBICORT [Suspect]
     Dosage: 160/4.5 UG
     Route: 055
  2. SINGULAIR [Concomitant]
  3. ASTELIN [Concomitant]
  4. ALLEGRA [Concomitant]
  5. PROVENTIL [Concomitant]
  6. NYQUIL [Concomitant]
  7. BIRTH CONTROL PILL [Concomitant]

REACTIONS (1)
  - SLEEP APNOEA SYNDROME [None]
